FAERS Safety Report 8878345 (Version 1)
Quarter: 2012Q4

REPORT INFORMATION
  Report Type: 
  Country: US (occurrence: US)
  Receive Date: 20121025
  Receipt Date: 20121025
  Transmission Date: 20130627
  Serious: No
  Sender: FDA-Public Use
  Company Number: US-AMGEN-USASP2012022599

PATIENT
  Age: 76 Year
  Sex: Male

DRUGS (15)
  1. ENBREL [Suspect]
     Indication: PRODUCT USED FOR UNKNOWN INDICATION
     Dosage: 25 mg, 2 times/wk
     Route: 058
  2. GEMFIBROZIL [Concomitant]
     Dosage: 600 mg, UNK
  3. VERAPAMIL [Concomitant]
     Dosage: 120 mg, UNK
  4. PRAVASTATIN [Concomitant]
     Dosage: 10 mg, UNK
  5. ACTOS [Concomitant]
     Dosage: 45 mg, UNK
  6. AVAPRO [Concomitant]
     Dosage: 300 mg, UNK
  7. ATENOLOL [Concomitant]
     Dosage: 50 mg, UNK
  8. HYDROCHLOROTH [Concomitant]
     Dosage: 50 mg, UNK
  9. DOXAZOSIN [Concomitant]
     Dosage: 4 mg, UNK
  10. GLYBURIDE [Concomitant]
     Dosage: 1.25 mg, UNK
  11. LASIX                              /00032601/ [Concomitant]
     Dosage: 40 mg, UNK
  12. LEVOTHYROXIN [Concomitant]
     Dosage: 50 mug, UNK
  13. TRAMADOL HCL [Concomitant]
     Dosage: 50 mg, UNK
  14. MULTIVITAMIN                       /01229101/ [Concomitant]
     Dosage: UNK
  15. CALCIUM + VITAMIN D [Concomitant]
     Dosage: UNK

REACTIONS (1)
  - Hot flush [Unknown]
